FAERS Safety Report 4502258-7 (Version None)
Quarter: 2004Q4

REPORT INFORMATION
  Report Type: 
  Country: None (occurrence: None)
  Receive Date: 20041116
  Receipt Date: 20041027
  Transmission Date: 20050328
  Serious: Yes (Hospitalization)
  Sender: FDA-Public Use
  Company Number: US-BRISTOL-MYERS SQUIBB COMPANY-12747499

PATIENT
  Age: 78 Year
  Sex: Female

DRUGS (6)
  1. CYCLOPHOSPHAMIDE [Suspect]
     Indication: CHRONIC LYMPHOCYTIC LEUKAEMIA
     Dosage: DAYS 5, 6, AND 7
     Route: 042
     Dates: start: 20020614, end: 20020616
  2. FLUDARABINE [Suspect]
     Indication: CHRONIC LYMPHOCYTIC LEUKAEMIA
     Dosage: DAYS 5, 6, AND 7
     Route: 042
     Dates: start: 20020614, end: 20020616
  3. GENASENSE [Suspect]
     Indication: CHRONIC LYMPHOCYTIC LEUKAEMIA
     Dosage: DAYS 1 TO 7
     Route: 042
     Dates: start: 20020610, end: 20020617
  4. PANCRELIPASE [Concomitant]
  5. PANTOPRAZOLE [Concomitant]
  6. AMLODIPINE [Concomitant]

REACTIONS (8)
  - ANAEMIA [None]
  - COUGH [None]
  - DYSPNOEA [None]
  - FLUSHING [None]
  - HAEMOGLOBIN DECREASED [None]
  - HYPOXIA [None]
  - THROMBOCYTOPENIA [None]
  - WHEEZING [None]
